FAERS Safety Report 5118225-9 (Version None)
Quarter: 2006Q4

REPORT INFORMATION
  Report Type: 
  Country: None (occurrence: None)
  Receive Date: 20061002
  Receipt Date: 20060608
  Transmission Date: 20070319
  Serious: No
  Sender: FDA-Public Use
  Company Number: US-BRISTOL-MYERS SQUIBB COMPANY-13405972

PATIENT
  Age: 55 Year
  Sex: Female
  Weight: 91 kg

DRUGS (5)
  1. ORENCIA [Suspect]
     Indication: RHEUMATOID ARTHRITIS
     Route: 042
     Dates: start: 20060608
  2. CELEXA [Concomitant]
  3. PREDNISONE [Concomitant]
  4. BENADRYL [Concomitant]
     Route: 048
     Dates: start: 20060608
  5. TYLENOL [Concomitant]
     Route: 048
     Dates: start: 20060608

REACTIONS (1)
  - PHARYNGOLARYNGEAL PAIN [None]
